FAERS Safety Report 16792237 (Version 1)
Quarter: 2019Q3

REPORT INFORMATION
  Report Type: Spontaneous
  Country: US (occurrence: US)
  Receive Date: 20190910
  Receipt Date: 20190910
  Transmission Date: 20191005
  Serious: No
  Sender: FDA-Public Use
  Company Number: US-ROCHE-2236107

PATIENT
  Age: 55 Year
  Sex: Female

DRUGS (4)
  1. PEGASYS [Suspect]
     Active Substance: PEGINTERFERON ALFA-2A
     Indication: PRODUCT USED FOR UNKNOWN INDICATION
     Route: 065
     Dates: start: 20150101
  2. LEVOTHYROXINE. [Concomitant]
     Active Substance: LEVOTHYROXINE
  3. NAPROSYN [Concomitant]
     Active Substance: NAPROXEN
  4. HYDROXYUREA. [Concomitant]
     Active Substance: HYDROXYUREA

REACTIONS (1)
  - Sputum discoloured [Unknown]

NARRATIVE: CASE EVENT DATE: 20181008
